FAERS Safety Report 22334698 (Version 1)
Quarter: 2023Q2

REPORT INFORMATION
  Report Type: Spontaneous
  Country: US (occurrence: None)
  Receive Date: 20230517
  Receipt Date: 20230517
  Transmission Date: 20230721
  Serious: No
  Sender: FDA-Public Use
  Company Number: US-ROCHE-3112006

PATIENT
  Sex: Female

DRUGS (7)
  1. ACTEMRA [Suspect]
     Active Substance: TOCILIZUMAB
     Indication: Giant cell arteritis
     Route: 058
     Dates: start: 20220407
  2. ACTEMRA [Suspect]
     Active Substance: TOCILIZUMAB
  3. ACTEMRA [Suspect]
     Active Substance: TOCILIZUMAB
  4. ACTEMRA [Suspect]
     Active Substance: TOCILIZUMAB
     Dosage: SELF-INJECTION IN LEG
     Route: 065
     Dates: start: 202201
  5. ACTEMRA [Suspect]
     Active Substance: TOCILIZUMAB
  6. ACTEMRA [Suspect]
     Active Substance: TOCILIZUMAB
  7. KEVZARA [Concomitant]
     Active Substance: SARILUMAB

REACTIONS (5)
  - Weight decreased [Unknown]
  - Contusion [Not Recovered/Not Resolved]
  - Injection site swelling [Unknown]
  - Body fat disorder [Unknown]
  - Cyst [Unknown]

NARRATIVE: CASE EVENT DATE: 20220527
